FAERS Safety Report 6432933-9 (Version None)
Quarter: 2009Q4

REPORT INFORMATION
  Report Type: 
  Country: None (occurrence: None)
  Receive Date: 20091109
  Receipt Date: 20091028
  Transmission Date: 20100525
  Serious: Yes (Other)
  Sender: FDA-Public Use
  Company Number: US-WYE-H11936609

PATIENT
  Sex: Male

DRUGS (8)
  1. PRISTIQ [Suspect]
     Indication: DEPRESSION
     Route: 048
     Dates: start: 20090701
  2. ACETYLSALICYLIC ACID [Suspect]
  3. AMIODARONE HYDROCHLORIDE [Concomitant]
  4. COREG [Concomitant]
  5. ZOCOR [Concomitant]
  6. CARVEDILOL [Concomitant]
  7. COUMADIN [Suspect]
  8. LEVOTHYROXINE SODIUM [Concomitant]

REACTIONS (2)
  - ATRIAL FIBRILLATION [None]
  - OESOPHAGEAL HAEMORRHAGE [None]
